FAERS Safety Report 26057164 (Version 1)
Quarter: 2025Q4

REPORT INFORMATION
  Report Type: Spontaneous
  Country: IN (occurrence: IN)
  Receive Date: 20251118
  Receipt Date: 20251118
  Transmission Date: 20260118
  Serious: Yes (Other)
  Sender: ALEXION PHARMACEUTICALS
  Company Number: IN-AstraZeneca-CH-00991487A

PATIENT
  Age: 25 Year
  Sex: Male

DRUGS (1)
  1. STRENSIQ [Suspect]
     Active Substance: ASFOTASE ALFA
     Indication: Hypophosphatasia
     Dosage: UNK
     Route: 065

REACTIONS (8)
  - Craniosynostosis [Unknown]
  - Fatigue [Unknown]
  - Nausea [Unknown]
  - Tooth disorder [Unknown]
  - Decreased appetite [Unknown]
  - Gait disturbance [Unknown]
  - Scoliosis [Unknown]
  - Therapeutic product effect decreased [Unknown]
